FAERS Safety Report 8486080-5 (Version None)
Quarter: 2012Q3

REPORT INFORMATION
  Report Type: 
  Country: None (occurrence: None)
  Receive Date: 20120703
  Receipt Date: 20120622
  Transmission Date: 20120928
  Serious: Yes (Other)
  Sender: FDA-Public Use
  Company Number: US-SANOFI-AVENTIS-2012SA045430

PATIENT
  Sex: Female

DRUGS (2)
  1. GLIPIZIDE [Suspect]
     Route: 065
  2. LANTUS [Suspect]
     Dosage: DOSE:24 UNIT(S)
     Route: 058

REACTIONS (6)
  - WEIGHT DECREASED [None]
  - BLOOD GLUCOSE INCREASED [None]
  - LOSS OF CONSCIOUSNESS [None]
  - TREMOR [None]
  - FEELING HOT [None]
  - ABDOMINAL DISCOMFORT [None]
